FAERS Safety Report 15680906 (Version 1)
Quarter: 2018Q4

REPORT INFORMATION
  Report Type: Spontaneous
  Country: US (occurrence: US)
  Receive Date: 20181203
  Receipt Date: 20181203
  Transmission Date: 20190205
  Serious: No
  Sender: FDA-Public Use
  Company Number: US-BAUSCH-BL-2018-007186

PATIENT
  Age: 24 Year
  Sex: Female
  Weight: 54.48 kg

DRUGS (1)
  1. ONEXTON [Suspect]
     Active Substance: BENZOYL PEROXIDE\CLINDAMYCIN PHOSPHATE
     Indication: ACNE
     Route: 065
     Dates: end: 201803

REACTIONS (4)
  - Burning sensation [Recovered/Resolved]
  - Dry skin [Recovered/Resolved]
  - Acne [Not Recovered/Not Resolved]
  - Skin swelling [Recovered/Resolved]
